FAERS Safety Report 8999971 (Version 1)
Quarter: 2013Q1

REPORT INFORMATION
  Report Type: Spontaneous
  Country: CH (occurrence: CH)
  Receive Date: 20130102
  Receipt Date: 20130102
  Transmission Date: 20140127
  Serious: Yes (Hospitalization)
  Sender: FDA-Public Use
  Company Number: CH-ELI_LILLY_AND_COMPANY-CH201212008153

PATIENT
  Age: 50 Year
  Sex: Male
  Weight: 87 kg

DRUGS (2)
  1. EFIENT [Suspect]
     Indication: STENT PLACEMENT
     Dosage: 60 MG, SINGLE
     Dates: start: 20101228
  2. EFIENT [Suspect]
     Dosage: 10 MG, UNK
     Dates: start: 20101229

REACTIONS (2)
  - Erysipelas [Recovering/Resolving]
  - Lymphangitis [Recovering/Resolving]
